FAERS Safety Report 4548398-8 (Version None)
Quarter: 2004Q4

REPORT INFORMATION
  Report Type: 
  Country: None (occurrence: None)
  Receive Date: 20041227
  Receipt Date: 20040927
  Transmission Date: 20050328
  Serious: No
  Sender: FDA-Public Use
  Company Number: 04P-163-0275005-00

PATIENT
  Age: 44 Year
  Sex: Female
  Weight: 85.2762 kg

DRUGS (4)
  1. HUMIRA [Suspect]
     Indication: POLYARTHRITIS
     Dosage: 40 MG, 1 IN 2 WK, SUBCUTANEOUS
     Route: 058
     Dates: start: 20040319, end: 20040802
  2. PREDNISONE [Concomitant]
  3. BUCINDOLOL HYDROCHLORIDE [Concomitant]
  4. METHOTREXATE [Concomitant]

REACTIONS (1)
  - SYSTEMIC LUPUS ERYTHEMATOSUS [None]
